FAERS Safety Report 13333147 (Version 1)
Quarter: 2017Q1

REPORT INFORMATION
  Report Type: Spontaneous
  Country: US (occurrence: US)
  Receive Date: 20170313
  Receipt Date: 20170313
  Transmission Date: 20170428
  Serious: No
  Sender: FDA-Public Use
  Company Number: GXBR2017US000564

PATIENT
  Sex: Male

DRUGS (2)
  1. METHADONE HYDROCHLORIDE TABLETS USP [Suspect]
     Active Substance: METHADONE HYDROCHLORIDE
     Indication: PRODUCT USED FOR UNKNOWN INDICATION
     Dosage: 160 MG, QID
     Route: 048
  2. ANTIBIOTICS [Concomitant]
     Active Substance: UNSPECIFIED INGREDIENT
     Indication: HIV INFECTION
     Dosage: UNK DF, UNK
     Route: 048

REACTIONS (2)
  - Intestinal obstruction [Unknown]
  - Hyperhidrosis [Unknown]
